FAERS Safety Report 12751501 (Version 1)
Quarter: 2016Q3

REPORT INFORMATION
  Report Type: Spontaneous
  Country: FR (occurrence: FR)
  Receive Date: 20160915
  Receipt Date: 20160915
  Transmission Date: 20161109
  Serious: Yes (Other)
  Sender: FDA-Public Use
  Company Number: FR-JAZZ-2016-FR-014006

PATIENT

DRUGS (25)
  1. ONCASPAR [Suspect]
     Active Substance: PEGASPARGASE
     Indication: ACUTE LYMPHOCYTIC LEUKAEMIA RECURRENT
     Dosage: 2500 IU/M2, UNK
     Route: 042
     Dates: start: 20150108, end: 20150108
  2. ONCASPAR [Suspect]
     Active Substance: PEGASPARGASE
     Dosage: 2500 IU/M2, UNK
     Dates: start: 20150208
  3. URSOLVAN [Concomitant]
     Active Substance: URSODIOL
     Indication: PRODUCT USED FOR UNKNOWN INDICATION
     Dosage: 400 MG, BID
  4. ORACILLINE [Concomitant]
     Active Substance: PENICILLIN V
     Indication: PRODUCT USED FOR UNKNOWN INDICATION
     Dosage: 1000000 IU, BID
     Route: 048
  5. CYTARABINE. [Concomitant]
     Active Substance: CYTARABINE
     Indication: ACUTE LYMPHOCYTIC LEUKAEMIA RECURRENT
     Dosage: 30 MG, UNK
     Route: 037
     Dates: start: 20150104, end: 20150104
  6. THIOGUANINE [Concomitant]
     Active Substance: THIOGUANINE
     Indication: ACUTE LYMPHOCYTIC LEUKAEMIA RECURRENT
     Dosage: 100 MG/M2, QD
     Dates: start: 20150103, end: 20150107
  7. VINDESINE [Concomitant]
     Active Substance: VINDESINE
     Indication: ACUTE LYMPHOCYTIC LEUKAEMIA RECURRENT
     Dosage: 3 MG/M2, UNK
     Dates: start: 20150103, end: 20150103
  8. METHOTREXATE. [Concomitant]
     Active Substance: METHOTREXATE
     Dosage: 1 G/M2, UNK
     Dates: start: 20150126
  9. DEXAMETHASONE. [Concomitant]
     Active Substance: DEXAMETHASONE
     Dosage: 10 MG/M2, BID
     Dates: start: 20150126, end: 20150130
  10. PURINETHOL [Concomitant]
     Active Substance: MERCAPTOPURINE
     Indication: ACUTE LYMPHOCYTIC LEUKAEMIA RECURRENT
     Dosage: 100 MG/M2, UNK
     Dates: start: 20150126, end: 20150126
  11. VINCRISTINE [Concomitant]
     Active Substance: VINCRISTINE
     Dosage: 1.5 MG/M2, UNK
     Dates: start: 20150131, end: 20150131
  12. ERWINASE [Suspect]
     Active Substance: ASPARAGINASE ERWINIA CHRYSANTHEMI
     Indication: ACUTE LYMPHOCYTIC LEUKAEMIA RECURRENT
     Dosage: 25000 IU/M2, QOD
     Route: 042
     Dates: start: 20150131, end: 20150206
  13. ZOVIRAX [Concomitant]
     Active Substance: ACYCLOVIR
     Indication: PRODUCT USED FOR UNKNOWN INDICATION
     Dosage: 200 MG, TID
  14. HYDROCORTISONE. [Concomitant]
     Active Substance: HYDROCORTISONE
     Indication: ACUTE LYMPHOCYTIC LEUKAEMIA RECURRENT
     Dosage: 15 MG, UNK
     Route: 037
     Dates: start: 20150104, end: 20150104
  15. MESNA. [Concomitant]
     Active Substance: MESNA
     Indication: PROPHYLAXIS
  16. DEXAMETHASONE. [Concomitant]
     Active Substance: DEXAMETHASONE
     Indication: ACUTE LYMPHOCYTIC LEUKAEMIA RECURRENT
     Dosage: 10 MG/M2, BID
     Route: 048
     Dates: start: 20150103, end: 20150107
  17. DEXAMETHASONE. [Concomitant]
     Active Substance: DEXAMETHASONE
     Dosage: DOSE REDUCTION
     Route: 048
     Dates: start: 20150108, end: 20150108
  18. DAUNORUBICINE [Concomitant]
     Active Substance: DAUNORUBICIN
     Indication: ACUTE LYMPHOCYTIC LEUKAEMIA RECURRENT
     Dosage: 35 MG/M2, UNK
     Dates: start: 20150107, end: 20150107
  19. PURINETHOL [Concomitant]
     Active Substance: MERCAPTOPURINE
     Dosage: 100 MG/M2, UNK
     Dates: start: 20150131, end: 20150131
  20. IFOSFAMIDE. [Concomitant]
     Active Substance: IFOSFAMIDE
     Indication: ACUTE LYMPHOCYTIC LEUKAEMIA RECURRENT
     Dosage: 400 MG/M2, UNK
     Dates: start: 20150103, end: 20150107
  21. METHOTREXATE. [Concomitant]
     Active Substance: METHOTREXATE
     Dosage: 12 MG, UNK
     Route: 037
     Dates: start: 20150104, end: 20150104
  22. VINCRISTINE [Concomitant]
     Active Substance: VINCRISTINE
     Indication: ACUTE LYMPHOCYTIC LEUKAEMIA RECURRENT
     Dosage: 1.5 MG/M2, UNK
     Dates: start: 20150126, end: 20150126
  23. ERWINASE [Suspect]
     Active Substance: ASPARAGINASE ERWINIA CHRYSANTHEMI
     Dosage: 6250 IU/M2, UNK
     Dates: start: 20150209, end: 20150209
  24. PENTACARINAT [Concomitant]
     Active Substance: PENTAMIDINE ISETHIONATE
     Indication: PRODUCT USED FOR UNKNOWN INDICATION
     Dosage: 300 MG, ONCE A MONTH
  25. METHOTREXATE. [Concomitant]
     Active Substance: METHOTREXATE
     Indication: ACUTE LYMPHOCYTIC LEUKAEMIA RECURRENT
     Dosage: 1000 MG/M2, CONTINUOUS INFUSION
     Route: 042
     Dates: start: 20150103, end: 20150103

REACTIONS (1)
  - Anaphylactic shock [Recovered/Resolved]

NARRATIVE: CASE EVENT DATE: 20150209
